FAERS Safety Report 13401854 (Version 1)
Quarter: 2017Q2

REPORT INFORMATION
  Report Type: Spontaneous
  Country: FR (occurrence: FR)
  Receive Date: 20170404
  Receipt Date: 20170404
  Transmission Date: 20170830
  Serious: Yes (Life-Threatening)
  Sender: FDA-Public Use
  Company Number: FR-SA-2017SA056423

PATIENT
  Age: 82 Year
  Sex: Male

DRUGS (3)
  1. ORENCIA [Suspect]
     Active Substance: ABATACEPT
     Indication: RHEUMATIC DISORDER
     Dosage: FORM: POWDER FOR ORAL SOLUTION FOR INFUSION
     Route: 042
     Dates: start: 20170208, end: 20170222
  2. RIFINAH [Interacting]
     Active Substance: ISONIAZID\RIFAMPIN
     Indication: ANTIBIOTIC PROPHYLAXIS
     Dosage: DOSE: ISONIAZID/RIFAMPICIN 600 MG/300 MG
     Route: 048
     Dates: start: 201701, end: 20170315
  3. ARAVA [Suspect]
     Active Substance: LEFLUNOMIDE
     Indication: RHEUMATIC DISORDER
     Route: 048
     Dates: start: 201609

REACTIONS (1)
  - Aplastic anaemia [Recovering/Resolving]

NARRATIVE: CASE EVENT DATE: 20170221
